FAERS Safety Report 9393243 (Version 1)
Quarter: 2013Q3

REPORT INFORMATION
  Report Type: Report from Study
  Country: US (occurrence: US)
  Receive Date: 20130710
  Receipt Date: 20130710
  Transmission Date: 20140515
  Serious: Yes (Other)
  Sender: FDA-Public Use
  Company Number: US-US-EMD SERONO, INC.-7222731

PATIENT
  Age: 53 Year
  Sex: Female

DRUGS (3)
  1. REBIF [Suspect]
     Indication: MULTIPLE SCLEROSIS
     Route: 058
     Dates: start: 2004
  2. REBIF [Suspect]
     Route: 058
     Dates: start: 20111215, end: 20130510
  3. BOTOX [Concomitant]
     Indication: MUSCULOSKELETAL STIFFNESS

REACTIONS (1)
  - Retinal vasculitis [Unknown]
